FAERS Safety Report 8665857 (Version 2)
Quarter: 2013Q1

REPORT INFORMATION
  Report Type: Spontaneous
  Country: GB (occurrence: None)
  Receive Date: 20120629
  Receipt Date: 20121120
  Transmission Date: 20140127
  Serious: Yes (Hospitalization)
  Sender: FDA-Public Use
  Company Number: GB-DEXPHARM-20120731

PATIENT
  Age: 37 Year
  Sex: Male

DRUGS (6)
  1. OMEPRAZOLE [Suspect]
     Indication: ABDOMINAL DISCOMFORT
     Dosage: 20 MG MILLIGRAM(S) 1 IN 1 DAY
     Route: 048
     Dates: start: 20110427
  2. AMOXICILLIN [Concomitant]
  3. DOXYCYCLINE [Concomitant]
  4. LAXIDO [Concomitant]
  5. QUETIAPINE [Concomitant]
  6. TRIMETHOPRIM [Concomitant]

REACTIONS (15)
  - Anaemia [None]
  - Anxiety [None]
  - Pyrexia [None]
  - Hair colour changes [None]
  - Hyperchlorhydria [None]
  - Jaundice [None]
  - Nausea [None]
  - Photosensitivity reaction [None]
  - Abdominal discomfort [None]
  - Dental caries [None]
  - Vomiting [None]
  - Dry skin [None]
  - Temperature regulation disorder [None]
  - Arthralgia [None]
  - Gastrooesophageal reflux disease [None]
